FAERS Safety Report 8297819 (Version 3)
Quarter: 2013Q2

REPORT INFORMATION
  Report Type: Spontaneous
  Country: US (occurrence: None)
  Receive Date: 20111122
  Receipt Date: 20120703
  Transmission Date: 20140414
  Serious: Yes (Other)
  Sender: FDA-Public Use
  Company Number: PHHY2011US25600

PATIENT
  Age: 55 Year
  Sex: Female

DRUGS (1)
  1. GILENYA [Suspect]
     Indication: RELAPSING-REMITTING MULTIPLE SCLEROSIS
     Dosage: 0.5 MG, QD, ORAL
     Route: 048
     Dates: start: 20110324

REACTIONS (9)
  - PYREXIA [None]
  - HEADACHE [None]
  - COUGH [None]
  - Upper respiratory tract infection [None]
  - Influenza like illness [None]
  - Hypersensitivity [None]
  - Rhinorrhoea [None]
  - Sneezing [None]
  - Pain [None]
